FAERS Safety Report 5778411-1 (Version None)
Quarter: 2008Q2

REPORT INFORMATION
  Report Type: 
  Country: None (occurrence: None)
  Receive Date: 20080619
  Receipt Date: 20070814
  Transmission Date: 20081010
  Serious: No
  Sender: FDA-Public Use
  Company Number: A0670163A

PATIENT
  Sex: Male

DRUGS (1)
  1. ZYBAN [Suspect]
     Dosage: 150MG TWICE PER DAY
     Route: 048
     Dates: start: 20070501

REACTIONS (2)
  - AFFECTIVE DISORDER [None]
  - MARITAL PROBLEM [None]
